FAERS Safety Report 25933968 (Version 1)
Quarter: 2025Q4

REPORT INFORMATION
  Report Type: Spontaneous
  Country: US (occurrence: US)
  Receive Date: 20251017
  Receipt Date: 20251017
  Transmission Date: 20260118
  Serious: Yes (Hospitalization)
  Sender: AMGEN
  Company Number: US-AMGEN-USASP2025205088

PATIENT
  Age: 60 Year
  Sex: Female

DRUGS (1)
  1. EVENITY [Suspect]
     Active Substance: ROMOSOZUMAB-AQQG
     Indication: Osteoporosis postmenopausal
     Dosage: 210 UNK, QMO
     Route: 058
     Dates: start: 202508, end: 202509

REACTIONS (2)
  - Fluid retention [Unknown]
  - Swelling [Unknown]

NARRATIVE: CASE EVENT DATE: 20250801
